FAERS Safety Report 15131439 (Version 1)
Quarter: 2018Q3

REPORT INFORMATION
  Report Type: Spontaneous
  Country: US (occurrence: US)
  Receive Date: 20180711
  Receipt Date: 20180711
  Transmission Date: 20181010
  Serious: No
  Sender: FDA-Public Use
  Company Number: US-ASTRAZENECA-2018SE76601

PATIENT
  Sex: Female

DRUGS (2)
  1. CRESTOR [Suspect]
     Active Substance: ROSUVASTATIN CALCIUM
     Route: 048
  2. ESTRING [Concomitant]
     Active Substance: ESTRADIOL

REACTIONS (4)
  - Flatulence [Recovered/Resolved]
  - Abdominal pain upper [Unknown]
  - Gastritis [Unknown]
  - Abdominal distension [Unknown]
